FAERS Safety Report 7530458-0 (Version None)
Quarter: 2011Q2

REPORT INFORMATION
  Report Type: 
  Country: None (occurrence: None)
  Receive Date: 20110607
  Receipt Date: 20110526
  Transmission Date: 20111010
  Serious: Yes (Hospitalization)
  Sender: FDA-Public Use
  Company Number: CA-BAYER-2011-048135

PATIENT
  Age: 26 Year
  Sex: Male

DRUGS (6)
  1. LANTUS [Suspect]
     Indication: PRODUCT USED FOR UNKNOWN INDICATION
     Dosage: DAILY DOSE 24 IU
     Route: 058
  2. NAPROXEN SODIUM [Suspect]
     Indication: PRODUCT USED FOR UNKNOWN INDICATION
     Dosage: DAILY DOSE 500 MG
     Route: 048
  3. LORAZEPAM [Suspect]
     Indication: PRODUCT USED FOR UNKNOWN INDICATION
     Dosage: DAILY DOSE 1 DF
     Route: 060
  4. LYRICA [Suspect]
     Indication: PRODUCT USED FOR UNKNOWN INDICATION
     Dosage: DAILY DOSE 1 DF
     Route: 048
  5. HUMALOG [Concomitant]
  6. OLANZAPINE [Suspect]
     Indication: PRODUCT USED FOR UNKNOWN INDICATION
     Dosage: DAILY DOSE 10 MG
     Route: 048

REACTIONS (12)
  - ACUTE STRESS DISORDER [None]
  - GAIT DISTURBANCE [None]
  - GENERAL PHYSICAL HEALTH DETERIORATION [None]
  - TREMOR [None]
  - DYSARTHRIA [None]
  - DYSPHAGIA [None]
  - HEADACHE [None]
  - SOMATISATION DISORDER [None]
  - VISION BLURRED [None]
  - SPEECH DISORDER [None]
  - DISABILITY [None]
  - HYPOKINESIA [None]
